FAERS Safety Report 24371074 (Version 1)
Quarter: 2024Q3

REPORT INFORMATION
  Report Type: Spontaneous
  Country: AU (occurrence: AU)
  Receive Date: 20240927
  Receipt Date: 20240927
  Transmission Date: 20241016
  Serious: Yes (Hospitalization, Other)
  Sender: CSL BEHRING
  Company Number: AU-BEH-2024179138

PATIENT
  Age: 12 Year
  Sex: Female

DRUGS (2)
  1. HUMAN IMMUNOGLOBULIN G [Suspect]
     Active Substance: HUMAN IMMUNOGLOBULIN G
     Dosage: 20 G
     Route: 042
     Dates: start: 20230626
  2. METHOTREXATE [Concomitant]
     Active Substance: METHOTREXATE

REACTIONS (16)
  - Febrile neutropenia [Unknown]
  - Seizure [Recovered/Resolved]
  - Altered state of consciousness [Unknown]
  - Hypertension [Recovered/Resolved]
  - Chills [Recovered/Resolved]
  - Pyrexia [Recovered/Resolved]
  - Heart rate increased [Recovered/Resolved]
  - Respiratory rate increased [Recovered/Resolved]
  - Vomiting [Unknown]
  - Toxicity to various agents [Recovering/Resolving]
  - Confusional state [Unknown]
  - Incontinence [Unknown]
  - Dysarthria [Unknown]
  - Echolalia [Unknown]
  - Concomitant disease aggravated [Unknown]
  - Oxygen saturation decreased [Unknown]

NARRATIVE: CASE EVENT DATE: 20230626
